FAERS Safety Report 22603209 (Version 2)
Quarter: 2023Q2

REPORT INFORMATION
  Report Type: Report from Study
  Country: CO (occurrence: CO)
  Receive Date: 20230615
  Receipt Date: 20230616
  Transmission Date: 20230722
  Serious: Yes (Hospitalization)
  Sender: FDA-Public Use
  Company Number: CO-ABBVIE-5291495

PATIENT
  Sex: Female

DRUGS (2)
  1. BOTOX [Suspect]
     Active Substance: ONABOTULINUMTOXINA
     Indication: Migraine
     Dosage: TIME INTERVAL: AS NECESSARY: 200 DOSAGE FORM
     Route: 030
     Dates: start: 20230223, end: 20230223
  2. BOTOX [Suspect]
     Active Substance: ONABOTULINUMTOXINA
     Indication: Migraine
     Dosage: TIME INTERVAL: AS NECESSARY: 200 DOSAGE FORM
     Route: 030
     Dates: start: 20210106, end: 20210106

REACTIONS (5)
  - Illness [Unknown]
  - Facial paresis [Unknown]
  - Anxiety [Unknown]
  - Headache [Unknown]
  - Injection site hypoaesthesia [Unknown]
